FAERS Safety Report 25659733 (Version 1)
Quarter: 2025Q3

REPORT INFORMATION
  Report Type: Spontaneous
  Country: JP (occurrence: JP)
  Receive Date: 20250808
  Receipt Date: 20250808
  Transmission Date: 20251020
  Serious: Yes (Other)
  Sender: ACCORD
  Company Number: JP-MLMSERVICE-20250722-PI585514-00123-1

PATIENT
  Age: 65 Year
  Sex: Male
  Weight: 66 kg

DRUGS (9)
  1. FLUOROURACIL [Suspect]
     Active Substance: FLUOROURACIL
     Indication: Oesophageal squamous cell carcinoma stage III
     Dosage: 500-750 MG/DAY
     Dates: start: 202103
  2. DOCETAXEL [Suspect]
     Active Substance: DOCETAXEL
     Indication: Oesophageal squamous cell carcinoma stage III
     Dosage: ON DAY 1
     Dates: start: 202103
  3. NEDAPLATIN [Suspect]
     Active Substance: NEDAPLATIN
     Indication: Oesophageal squamous cell carcinoma stage III
     Dosage: FROM DAYS 1-5
     Dates: start: 202103
  4. FOLIC ACID [Concomitant]
     Active Substance: FOLIC ACID
  5. SULFASALAZINE [Concomitant]
     Active Substance: SULFASALAZINE
  6. METHOTREXATE [Concomitant]
     Active Substance: METHOTREXATE
     Dosage: LOW-DOSE
  7. FLUOROURACIL [Suspect]
     Active Substance: FLUOROURACIL
     Indication: Metastases to lymph nodes
     Dosage: 500-750 MG/DAY
     Dates: start: 202103
  8. DOCETAXEL [Suspect]
     Active Substance: DOCETAXEL
     Indication: Metastases to lymph nodes
     Dosage: ON DAY 1
     Dates: start: 202103
  9. NEDAPLATIN [Suspect]
     Active Substance: NEDAPLATIN
     Indication: Metastases to lymph nodes
     Dosage: FROM DAYS 1-5
     Dates: start: 202103

REACTIONS (2)
  - Neutropenia [Unknown]
  - Febrile neutropenia [Unknown]

NARRATIVE: CASE EVENT DATE: 20210101
